FAERS Safety Report 5104454-7 (Version None)
Quarter: 2006Q3

REPORT INFORMATION
  Report Type: 
  Country: None (occurrence: None)
  Receive Date: 20060731
  Receipt Date: 20060216
  Transmission Date: 20061208
  Serious: Yes (Death)
  Sender: FDA-Public Use
  Company Number: US-JNJFOC-20060204613

PATIENT
  Age: 45 Year
  Sex: Male

DRUGS (1)
  1. RISPERDAL CONSTA [Suspect]
     Indication: SCHIZOPHRENIA
     Dosage: 25 MG, IN 2 WEEK, INTRAMUSCULAR
     Route: 030
     Dates: start: 20041001, end: 20060127

REACTIONS (1)
  - INTESTINAL OBSTRUCTION [None]
